FAERS Safety Report 8368877-5 (Version None)
Quarter: 2012Q2

REPORT INFORMATION
  Report Type: 
  Country: None (occurrence: None)
  Receive Date: 20120518
  Receipt Date: 20120507
  Transmission Date: 20120825
  Serious: Yes (Death, Hospitalization)
  Sender: FDA-Public Use
  Company Number: US-ACCORD-013502

PATIENT
  Age: 40 Year
  Sex: Female

DRUGS (5)
  1. VENLAFAXINE [Suspect]
     Indication: DEPRESSION
     Dosage: EXTENDED-RELEASE VENLAFAXINE 75 MG DAILY
  2. QUETIAPINE FUMARATE [Suspect]
     Indication: DEPRESSION
  3. MIRTAZAPINE [Suspect]
     Indication: DEPRESSION
  4. FERROUS SULFATE TAB [Concomitant]
  5. LAMOTRIGINE [Suspect]
     Indication: DEPRESSION

REACTIONS (11)
  - ENTEROCOCCAL INFECTION [None]
  - CARDIAC ARREST [None]
  - RENAL FAILURE ACUTE [None]
  - CELLULITIS [None]
  - SEPTIC SHOCK [None]
  - AGRANULOCYTOSIS [None]
  - FEBRILE NEUTROPENIA [None]
  - ORAL CANDIDIASIS [None]
  - CONVULSION [None]
  - ALANINE AMINOTRANSFERASE INCREASED [None]
  - PLATELET COUNT DECREASED [None]
